FAERS Safety Report 4746761-3 (Version None)
Quarter: 2005Q3

REPORT INFORMATION
  Report Type: 
  Country: None (occurrence: None)
  Receive Date: 20050817
  Receipt Date: 20050405
  Transmission Date: 20060218
  Serious: Yes (Other)
  Sender: FDA-Public Use
  Company Number: US-GILEAD-2005-0008251

PATIENT
  Sex: Male
  Weight: 81.72 kg

DRUGS (2)
  1. VIREAD [Suspect]
     Indication: HIV INFECTION
  2. COMBIVIR [Concomitant]
     Indication: HIV INFECTION

REACTIONS (3)
  - GLOMERULONEPHRITIS RAPIDLY PROGRESSIVE [None]
  - HAEMOGLOBIN DECREASED [None]
  - TREATMENT NONCOMPLIANCE [None]
